FAERS Safety Report 4566834-8 (Version None)
Quarter: 2005Q1

REPORT INFORMATION
  Report Type: 
  Country: None (occurrence: None)
  Receive Date: 20050201
  Receipt Date: 20020418
  Transmission Date: 20050727
  Serious: Yes (Other)
  Sender: FDA-Public Use
  Company Number: US-BRISTOL-MYERS SQUIBB COMPANY-11834249

PATIENT
  Age: 37 Year
  Sex: Female

DRUGS (7)
  1. STADOL [Suspect]
     Indication: MIGRAINE
     Route: 045
     Dates: start: 19950811, end: 19990510
  2. PERCODAN [Concomitant]
  3. HYDROXYZINE [Concomitant]
  4. AMITRIPTYLINE HCL [Concomitant]
  5. HYDROCODONE + ACETAMINOPHEN [Concomitant]
  6. NAPROXEN [Concomitant]
  7. ALPRAZOLAM [Concomitant]

REACTIONS (2)
  - DEPENDENCE [None]
  - DRUG WITHDRAWAL SYNDROME [None]
